FAERS Safety Report 7421709-1 (Version None)
Quarter: 2011Q2

REPORT INFORMATION
  Report Type: 
  Country: None (occurrence: None)
  Receive Date: 20110418
  Receipt Date: 20100124
  Transmission Date: 20111010
  Serious: Yes (Death, Other)
  Sender: FDA-Public Use
  Company Number: US-BAYER-201012037NA

PATIENT
  Age: 54 Year
  Sex: Male
  Weight: 92.971 kg

DRUGS (46)
  1. NPH INSULIN [Concomitant]
     Dosage: 20 U, OM
     Route: 058
  2. ISOFLURANE [Concomitant]
     Dosage: UNK
     Dates: start: 20041222
  3. CARVEDILOL [Concomitant]
     Dosage: 25MG - 50 MG TWICE A DAY
     Route: 048
  4. CAPTOPRIL [Concomitant]
     Dosage: 50 MG - 62.5 MG EVERY 8 HOURS
     Route: 048
  5. TRASYLOL [Suspect]
     Indication: PAIN MANAGEMENT
  6. NOVOLOG [Concomitant]
     Dosage: 19 U, TID
     Route: 058
  7. ASCORBIC ACID [Concomitant]
     Dosage: 500 MG, UNK
     Route: 048
  8. MORPHINE [Concomitant]
     Dosage: 8 MG, UNK
     Route: 042
     Dates: start: 20041214, end: 20041214
  9. VIOXX [Concomitant]
     Dosage: 25 MG, QD
     Route: 048
     Dates: end: 20041001
  10. VERSED [Concomitant]
     Dosage: 2 MG, UNK
     Route: 042
     Dates: start: 20041222
  11. ISORDIL [Concomitant]
     Dosage: 20 MG, TID
     Route: 048
  12. HYDROCHLOROTHIAZIDE [Concomitant]
     Dosage: 50 MG, TID
     Route: 048
  13. NEO-SYNEPHRINOL [Concomitant]
     Dosage: 160 MCG/MINUTE
     Route: 042
     Dates: start: 20041222
  14. NESIRITIDE [Concomitant]
     Dosage: 0.01 UNK, UNK
     Route: 042
     Dates: start: 20041222
  15. INSULIN [Concomitant]
     Dosage: 27 U, UNK
     Dates: start: 20041222
  16. ALBUMIN (HUMAN) [Concomitant]
  17. MILRINONE [Concomitant]
     Dosage: 0.5 MCG/ KG/MIN
     Route: 042
  18. LASIX [Concomitant]
     Dosage: 40 MG - 300 MG DAILY
     Route: 048
  19. DIGOXIN [Concomitant]
     Dosage: 0.25 MG, QD
     Route: 048
  20. TRASYLOL [Suspect]
     Indication: CARDIAC OPERATION
     Dosage: 100 ML LOADING DOSE
     Route: 042
     Dates: start: 20041222, end: 20041222
  21. ACETYLSALICYLIC ACID SRT [Concomitant]
     Dosage: 81 MG, QD
     Route: 048
  22. NIACIN [Concomitant]
     Dosage: 500 MG, BID
  23. VALIUM [Concomitant]
     Dosage: 8 MG, UNK
     Route: 042
     Dates: start: 20041214, end: 20041214
  24. VECURONIUM BROMIDE [Concomitant]
     Dosage: 10 MG, UNK
     Route: 042
     Dates: start: 20041222
  25. DOPAMINE HCL [Concomitant]
     Dosage: 3 MCG/KG/MINUTE
     Route: 042
  26. HEPARIN [Concomitant]
     Dosage: 26000 U, UNK
     Dates: start: 20041222
  27. CALCIUM CHLORIDE [Concomitant]
     Dosage: 2.0 G, UNK
     Route: 042
     Dates: start: 20041222
  28. EPHEDRINE [Concomitant]
     Dosage: 20 MG, UNK
     Route: 042
     Dates: start: 20041222
  29. K-DUR [Concomitant]
     Dosage: 40 MEQ, UNK
     Route: 048
  30. MILRINONE [Concomitant]
     Dosage: UNK
     Route: 042
     Dates: start: 20041210
  31. HYDRALAZINE [Concomitant]
  32. AMIODARONE [Concomitant]
     Dosage: 200 MG - 300MG TWICE A DAY
     Route: 048
     Dates: start: 20041210
  33. COUMADIN [Concomitant]
     Dosage: 2MG - 5 MG PER DAY
     Route: 048
  34. SPIRONOLACTONE [Concomitant]
     Dosage: 25 MG, QD
     Route: 048
  35. FENOFIBRATE [Concomitant]
     Dosage: 160 MG, QD
     Route: 048
     Dates: start: 20040401
  36. ALBUTEROL SULFATE AND IPRATROPIUM BROMIDE [Concomitant]
     Dosage: 2 PUFF(S), UNK
     Route: 055
  37. PROTAMINE SULFATE [Concomitant]
     Dosage: 450 MG, UNK
     Dates: start: 20041222
  38. NORMAL SALINE [Concomitant]
     Dosage: 1700 ML, UNK
     Route: 042
     Dates: start: 20041222
  39. LIDOCAINE [Concomitant]
  40. TRASYLOL [Suspect]
     Indication: CORONARY ARTERY BYPASS
     Dosage: 50 ML, Q1HR
     Route: 042
     Dates: start: 20041222, end: 20041222
  41. NPH INSULIN [Concomitant]
     Dosage: 15 UNITS, QHS
     Route: 058
  42. SIMVASTATIN [Concomitant]
     Dosage: 80 MG, QD
     Route: 048
  43. GLYBURIDE [Concomitant]
     Dosage: 10 MG, BID
  44. FENTANYL [Concomitant]
     Dosage: 250 MCG/HOUR
     Route: 042
     Dates: start: 20041222
  45. SODIUM BICARBONATE [Concomitant]
     Dosage: 100 MEQ, UNK
     Route: 042
     Dates: start: 20041222
  46. LASIX [Concomitant]

REACTIONS (12)
  - RENAL FAILURE [None]
  - RENAL IMPAIRMENT [None]
  - ANXIETY [None]
  - DEATH [None]
  - MULTI-ORGAN FAILURE [None]
  - INJURY [None]
  - EMOTIONAL DISTRESS [None]
  - FEAR [None]
  - UNEVALUABLE EVENT [None]
  - RENAL INJURY [None]
  - STRESS [None]
  - PAIN [None]
